FAERS Safety Report 9193836 (Version 1)
Quarter: 2013Q1

REPORT INFORMATION
  Report Type: Spontaneous
  Country: US (occurrence: US)
  Receive Date: 20130327
  Receipt Date: 20130327
  Transmission Date: 20140127
  Serious: Yes (Other)
  Sender: FDA-Public Use
  Company Number: US-AMGEN-USASP2013018933

PATIENT
  Sex: Female

DRUGS (2)
  1. XGEVA [Suspect]
     Indication: BONE CANCER
  2. XANAX [Concomitant]
     Dosage: 1 MG, TID

REACTIONS (6)
  - Paranoia [Unknown]
  - Neoplasm [Unknown]
  - Palpitations [Unknown]
  - Bruxism [Unknown]
  - Anxiety [Unknown]
  - Drug ineffective [Unknown]
